FAERS Safety Report 5156824-9 (Version None)
Quarter: 2006Q4

REPORT INFORMATION
  Report Type: 
  Country: None (occurrence: None)
  Receive Date: 20061115
  Receipt Date: 20061103
  Transmission Date: 20070319
  Serious: Yes (Hospitalization)
  Sender: FDA-Public Use
  Company Number: 15093

PATIENT
  Age: 65 Year
  Sex: Female

DRUGS (4)
  1. AMIODARONE HCL [Suspect]
     Indication: ATRIAL FIBRILLATION
     Dosage: PO
     Route: 048
  2. AMIODARONE HCL [Suspect]
     Indication: VENTRICULAR ARRHYTHMIA
     Dosage: PO
     Route: 048
  3. METHIMAZOLE [Concomitant]
  4. PROPYLTHIOURACIL [Concomitant]

REACTIONS (10)
  - ATRIOVENTRICULAR BLOCK FIRST DEGREE [None]
  - ATRIOVENTRICULAR BLOCK SECOND DEGREE [None]
  - BRONCHIAL DISORDER [None]
  - BUNDLE BRANCH BLOCK LEFT [None]
  - DRUG INTOLERANCE [None]
  - EMPHYSEMA [None]
  - HYPERTHYROIDISM [None]
  - HYPOXIA [None]
  - MITRAL VALVE INCOMPETENCE [None]
  - TRICUSPID VALVE INCOMPETENCE [None]
